FAERS Safety Report 18024488 (Version 1)
Quarter: 2020Q3

REPORT INFORMATION
  Report Type: Spontaneous
  Country: CN (occurrence: CN)
  Receive Date: 20200714
  Receipt Date: 20200714
  Transmission Date: 20201103
  Serious: Yes (Hospitalization, Other)
  Sender: FDA-Public Use
  Company Number: CN-ABBVIE-20K-035-3477997-00

PATIENT
  Age: 56 Year
  Sex: Male
  Weight: 65 kg

DRUGS (2)
  1. ALUVIA [Suspect]
     Active Substance: LOPINAVIR\RITONAVIR
     Indication: COVID-19 PNEUMONIA
     Route: 048
     Dates: start: 20200126, end: 20200131
  2. INTERFERON ALFA?2A RECOMBINANT [Concomitant]
     Active Substance: INTERFERON ALFA-2A
     Indication: COVID-19 PNEUMONIA
     Route: 055
     Dates: start: 20200126, end: 20200131

REACTIONS (4)
  - Off label use [Unknown]
  - Abdominal distension [Unknown]
  - Electrolyte imbalance [Recovering/Resolving]
  - Diarrhoea [Recovered/Resolved]

NARRATIVE: CASE EVENT DATE: 20200126
